FAERS Safety Report 23610519 (Version 2)
Quarter: 2024Q1

REPORT INFORMATION
  Report Type: Spontaneous
  Country: IN (occurrence: IN)
  Receive Date: 20240308
  Receipt Date: 20240321
  Transmission Date: 20240410
  Serious: Yes (Hospitalization, Other)
  Sender: FDA-Public Use
  Company Number: IN-LUPIN PHARMACEUTICALS INC.-2024-01716

PATIENT
  Age: 4 Decade
  Sex: Male

DRUGS (5)
  1. LINEZOLID [Suspect]
     Active Substance: LINEZOLID
     Indication: Tuberculosis
     Dosage: UNK
     Route: 065
  2. LEVOFLOXACIN [Suspect]
     Active Substance: LEVOFLOXACIN
     Indication: Tuberculosis
     Dosage: UNK
     Route: 065
  3. BEDAQUILINE [Concomitant]
     Active Substance: BEDAQUILINE
     Indication: Tuberculosis
     Dosage: UNK
     Route: 065
  4. CYCLOSERINE [Concomitant]
     Active Substance: CYCLOSERINE
     Indication: Tuberculosis
     Dosage: UNK
     Route: 065
  5. CLOFAZIMINE [Concomitant]
     Active Substance: CLOFAZIMINE
     Indication: Tuberculosis
     Dosage: UNK
     Route: 065

REACTIONS (2)
  - Lactic acidosis [Recovered/Resolved]
  - Off label use [Unknown]
